FAERS Safety Report 7267177-4 (Version None)
Quarter: 2011Q1

REPORT INFORMATION
  Report Type: 
  Country: None (occurrence: None)
  Receive Date: 20110119
  Receipt Date: 20110110
  Transmission Date: 20110831
  Serious: Yes (Other)
  Sender: FDA-Public Use
  Company Number: 2011SP001360

PATIENT
  Age: 48 Year
  Sex: Female

DRUGS (3)
  1. IMPLANON [Suspect]
     Dates: end: 20101123
  2. IMPLANON [Suspect]
     Dates: start: 20101123
  3. OXYTETRACYCLINE [Concomitant]

REACTIONS (1)
  - NERVOUS SYSTEM DISORDER [None]
